FAERS Safety Report 16969422 (Version 1)
Quarter: 2019Q4

REPORT INFORMATION
  Report Type: Other
  Country: GB (occurrence: GB)
  Receive Date: 20191029
  Receipt Date: 20191029
  Transmission Date: 20200122
  Serious: Yes (Other)
  Sender: FDA-Public Use
  Company Number: GB-BECTON DICKINSON-2019BDN00381

PATIENT
  Age: 58 Year
  Sex: Female
  Weight: 66.67 kg

DRUGS (4)
  1. CHLORAPREP [Suspect]
     Active Substance: CHLORHEXIDINE GLUCONATE\ISOPROPYL ALCOHOL
     Indication: INFECTION PROPHYLAXIS
     Dosage: UNK
     Route: 048
     Dates: start: 20190920, end: 20190920
  2. HOMEOPATHIC REMEDY [Concomitant]
     Active Substance: HOMEOPATHICS
     Dosage: ()
  3. VITAMIN SUPPLEMENT [Concomitant]
     Active Substance: VITAMINS
     Dosage: ()
  4. ESTROGENS CONJUGATED [Concomitant]
     Active Substance: ESTROGENS, CONJUGATED
     Dosage: ()

REACTIONS (4)
  - Application site rash [Not Recovered/Not Resolved]
  - Swelling face [Recovering/Resolving]
  - Oropharyngeal pain [Recovering/Resolving]
  - Wheezing [Not Recovered/Not Resolved]

NARRATIVE: CASE EVENT DATE: 20190922
